FAERS Safety Report 16589250 (Version 2)
Quarter: 2019Q3

REPORT INFORMATION
  Report Type: Spontaneous
  Country: US (occurrence: US)
  Receive Date: 20190718
  Receipt Date: 20190923
  Transmission Date: 20191004
  Serious: No
  Sender: FDA-Public Use
  Company Number: US-BIOGEN-2013BI021169

PATIENT
  Sex: Female

DRUGS (1)
  1. TYSABRI [Suspect]
     Active Substance: NATALIZUMAB
     Indication: MULTIPLE SCLEROSIS
     Route: 042
     Dates: start: 20090501

REACTIONS (3)
  - Multiple sclerosis [Recovered/Resolved]
  - Peroneal nerve palsy [Unknown]
  - Memory impairment [Unknown]

NARRATIVE: CASE EVENT DATE: 2011
